FAERS Safety Report 4777444-1 (Version None)
Quarter: 2005Q3

REPORT INFORMATION
  Report Type: 
  Country: None (occurrence: None)
  Receive Date: 20050915
  Receipt Date: 20050822
  Transmission Date: 20060218
  Serious: Yes (Life-Threatening, Hospitalization)
  Sender: FDA-Public Use
  Company Number: 0205030

PATIENT
  Age: 66 Year
  Sex: Female
  Weight: 123 kg

DRUGS (2)
  1. DEPODUR [Suspect]
     Indication: POSTOPERATIVE ANALGESIA
     Dosage: 15 MG (ONCE), EPIDURAL
     Route: 008
     Dates: start: 20050802, end: 20050802
  2. FENTANYL [Concomitant]

REACTIONS (6)
  - BLOOD PRESSURE DIASTOLIC DECREASED [None]
  - DEPRESSED LEVEL OF CONSCIOUSNESS [None]
  - OXYGEN SATURATION DECREASED [None]
  - RESPIRATORY RATE DECREASED [None]
  - SEDATION [None]
  - SOMNOLENCE [None]
